FAERS Safety Report 10225562 (Version 1)
Quarter: 2014Q2

REPORT INFORMATION
  Report Type: Spontaneous
  Country: US (occurrence: US)
  Receive Date: 20140609
  Receipt Date: 20140609
  Transmission Date: 20141212
  Serious: Yes (Other)
  Sender: FDA-Public Use
  Company Number: US-ASTELLAS-2014US000732

PATIENT
  Sex: Male

DRUGS (18)
  1. PROGRAF [Suspect]
     Indication: RENAL TRANSPLANT
     Route: 048
  2. IMURAN                             /00001501/ [Concomitant]
     Indication: RENAL TRANSPLANT
     Route: 048
  3. PEPCID                             /00706001/ [Concomitant]
     Indication: ABDOMINAL DISCOMFORT
     Route: 048
  4. NORVASC [Concomitant]
     Indication: HYPERTENSION
     Route: 048
  5. ZOLOFT [Concomitant]
     Indication: ANXIETY DISORDER
     Route: 048
  6. LEVOTHYROXINE [Concomitant]
     Indication: HYPOTHYROIDISM
     Route: 048
  7. METOPROLOL [Concomitant]
     Indication: HYPERTENSION
     Dosage: HALF A TABLET , UID/QD
     Route: 048
  8. COUMADINE [Concomitant]
     Indication: ANTICOAGULANT THERAPY
     Route: 048
  9. LIPITOR [Concomitant]
     Indication: BLOOD CHOLESTEROL INCREASED
     Route: 048
  10. SODIUM BICARBONATE [Concomitant]
     Indication: BLOOD POTASSIUM
     Route: 048
  11. KIONEX [Concomitant]
     Indication: BLOOD POTASSIUM
     Route: 048
  12. HYDRALAZINE [Concomitant]
     Indication: ANTICOAGULANT THERAPY
     Route: 048
  13. AMIODARONE [Concomitant]
     Indication: CARDIAC DISORDER
     Route: 048
  14. CHLORTHALIDONE [Concomitant]
     Indication: CARDIAC DISORDER
     Route: 048
  15. ISOSORBIDE [Concomitant]
     Indication: CARDIAC DISORDER
     Route: 048
  16. NITROSTAT [Concomitant]
     Indication: CHEST PAIN
     Dosage: 0.4 MG, AS NEEDED
     Route: 048
  17. TAMSULOSIN [Concomitant]
     Indication: MICTURITION DISORDER
     Dosage: 0.4 MG, ONCE DAILY
     Route: 048
  18. NOVOLOG [Concomitant]
     Indication: DIABETES MELLITUS
     Route: 042

REACTIONS (1)
  - Malaise [Unknown]
